FAERS Safety Report 23088021 (Version 1)
Quarter: 2023Q4

REPORT INFORMATION
  Report Type: Report from Study
  Country: CN (occurrence: None)
  Receive Date: 20231020
  Receipt Date: 20231020
  Transmission Date: 20240110
  Serious: Yes (Hospitalization)
  Sender: FDA-Public Use
  Company Number: CN-ROCHE-2519034

PATIENT
  Age: 50 Year
  Sex: Female
  Weight: 48 kg

DRUGS (69)
  1. BEVACIZUMAB [Suspect]
     Active Substance: BEVACIZUMAB
     Indication: Ovarian epithelial cancer
     Dosage: DATE OF MOST RECENT DOSE OF BLINDED BEVACIZUMAB PRIOR TO EVENT ONSET: 21/DEC/2019
     Route: 042
     Dates: start: 20190930
  2. PACLITAXEL [Suspect]
     Active Substance: PACLITAXEL
     Indication: Ovarian epithelial cancer
     Route: 042
     Dates: start: 20190906
  3. PACLITAXEL [Suspect]
     Active Substance: PACLITAXEL
     Dosage: DATE OF MOST RECENT DOSE (220 MG) OF PACLITAXEL PRIOR TO AE AND SAE ONSET: 21/DEC/2019?DOSE LAST STU
     Route: 042
  4. CARBOPLATIN [Suspect]
     Active Substance: CARBOPLATIN
     Indication: Ovarian epithelial cancer
     Route: 042
     Dates: start: 20190906
  5. CARBOPLATIN [Suspect]
     Active Substance: CARBOPLATIN
     Dosage: DATE OF MOST RECENT DOSE (550 MG) OF BLINDED CARBOPLATIN PRIOR TO AE AND SAE ONSET: 21/DEC/2019?DOSE
     Route: 042
  6. AMINOPHENAZONE [Concomitant]
     Active Substance: AMINOPHENAZONE
     Indication: Pain
     Dates: start: 20190831, end: 20190831
  7. AMINOPHENAZONE [Concomitant]
     Active Substance: AMINOPHENAZONE
     Dates: start: 20190904, end: 20190906
  8. AMINOPHENAZONE [Concomitant]
     Active Substance: AMINOPHENAZONE
     Dates: start: 20190918, end: 20190918
  9. OXYCODONE [Concomitant]
     Active Substance: OXYCODONE
     Indication: Pain
     Dates: start: 20190831, end: 20190831
  10. OXYCODONE [Concomitant]
     Active Substance: OXYCODONE
     Dates: start: 20190904, end: 20190906
  11. LIDOCAINE HYDROCHLORIDE [Concomitant]
     Active Substance: LIDOCAINE HYDROCHLORIDE
     Indication: Anaesthesia
     Dates: start: 20190904, end: 20190904
  12. HEPARIN SODIUM [Concomitant]
     Active Substance: HEPARIN SODIUM
     Dates: start: 20190904, end: 20190907
  13. DEXAMETHASONE ACETATE [Concomitant]
     Active Substance: DEXAMETHASONE ACETATE
     Indication: Hypersensitivity
     Dates: start: 20190905, end: 20190906
  14. DEXAMETHASONE ACETATE [Concomitant]
     Active Substance: DEXAMETHASONE ACETATE
     Dates: start: 20190929, end: 20190930
  15. DEXAMETHASONE ACETATE [Concomitant]
     Active Substance: DEXAMETHASONE ACETATE
     Dates: start: 20191021, end: 20191022
  16. DEXAMETHASONE ACETATE [Concomitant]
     Active Substance: DEXAMETHASONE ACETATE
     Dates: start: 20191115, end: 20191116
  17. DIPHENHYDRAMINE HYDROCHLORIDE [Concomitant]
     Active Substance: DIPHENHYDRAMINE HYDROCHLORIDE
     Dates: start: 20190906, end: 20190906
  18. DIPHENHYDRAMINE HYDROCHLORIDE [Concomitant]
     Active Substance: DIPHENHYDRAMINE HYDROCHLORIDE
     Dates: start: 20190930, end: 20190930
  19. DIPHENHYDRAMINE HYDROCHLORIDE [Concomitant]
     Active Substance: DIPHENHYDRAMINE HYDROCHLORIDE
     Dates: start: 20191022, end: 20191022
  20. DIPHENHYDRAMINE HYDROCHLORIDE [Concomitant]
     Active Substance: DIPHENHYDRAMINE HYDROCHLORIDE
     Dates: start: 20191116, end: 20191116
  21. DIPHENHYDRAMINE HYDROCHLORIDE [Concomitant]
     Active Substance: DIPHENHYDRAMINE HYDROCHLORIDE
     Dates: start: 20191221, end: 20191221
  22. DEXAMETHASONE SODIUM PHOSPHATE [Concomitant]
     Active Substance: DEXAMETHASONE SODIUM PHOSPHATE
     Dates: start: 20190906, end: 20190907
  23. DEXAMETHASONE SODIUM PHOSPHATE [Concomitant]
     Active Substance: DEXAMETHASONE SODIUM PHOSPHATE
     Dates: start: 20190930, end: 20191001
  24. DEXAMETHASONE SODIUM PHOSPHATE [Concomitant]
     Active Substance: DEXAMETHASONE SODIUM PHOSPHATE
     Dates: start: 20191022, end: 20191023
  25. DEXAMETHASONE SODIUM PHOSPHATE [Concomitant]
     Active Substance: DEXAMETHASONE SODIUM PHOSPHATE
     Dates: start: 20191116, end: 20191117
  26. RAMOSETRON HYDROCHLORIDE [Concomitant]
     Active Substance: RAMOSETRON HYDROCHLORIDE
     Dates: start: 20190906, end: 20190907
  27. RAMOSETRON HYDROCHLORIDE [Concomitant]
     Active Substance: RAMOSETRON HYDROCHLORIDE
     Dates: start: 20190930, end: 20191001
  28. RAMOSETRON HYDROCHLORIDE [Concomitant]
     Active Substance: RAMOSETRON HYDROCHLORIDE
     Dates: start: 20191022, end: 20191023
  29. RAMOSETRON HYDROCHLORIDE [Concomitant]
     Active Substance: RAMOSETRON HYDROCHLORIDE
     Dates: start: 20191116, end: 20191117
  30. RAMOSETRON HYDROCHLORIDE [Concomitant]
     Active Substance: RAMOSETRON HYDROCHLORIDE
     Dates: start: 20191221, end: 20191221
  31. VITAMIN C [Concomitant]
     Active Substance: ASCORBIC ACID
     Dates: start: 20190906, end: 20190906
  32. VITAMIN C [Concomitant]
     Active Substance: ASCORBIC ACID
     Dates: start: 20190930, end: 20190930
  33. VITAMIN C [Concomitant]
     Active Substance: ASCORBIC ACID
     Dates: start: 20191022, end: 20191023
  34. VITAMIN C [Concomitant]
     Active Substance: ASCORBIC ACID
     Dates: start: 20191116, end: 20191116
  35. VITAMIN C [Concomitant]
     Active Substance: ASCORBIC ACID
     Dates: start: 20191221, end: 20191221
  36. VITAMIN C [Concomitant]
     Active Substance: ASCORBIC ACID
     Dates: start: 20200101, end: 20200106
  37. POTASSIUM CHLORIDE [Concomitant]
     Active Substance: POTASSIUM CHLORIDE
     Dates: start: 20190906, end: 20190907
  38. POTASSIUM CHLORIDE [Concomitant]
     Active Substance: POTASSIUM CHLORIDE
     Dates: start: 20190930, end: 20191001
  39. POTASSIUM CHLORIDE [Concomitant]
     Active Substance: POTASSIUM CHLORIDE
     Dates: start: 20191022, end: 20191023
  40. POTASSIUM CHLORIDE [Concomitant]
     Active Substance: POTASSIUM CHLORIDE
     Dates: start: 20191116, end: 20191117
  41. POTASSIUM CHLORIDE [Concomitant]
     Active Substance: POTASSIUM CHLORIDE
     Dates: start: 20191221, end: 20191221
  42. POTASSIUM CHLORIDE [Concomitant]
     Active Substance: POTASSIUM CHLORIDE
     Dates: start: 20200101, end: 20200106
  43. CIMETIDINE [Concomitant]
     Active Substance: CIMETIDINE
     Dates: start: 20190930, end: 20190930
  44. CIMETIDINE [Concomitant]
     Active Substance: CIMETIDINE
     Dates: start: 20191022, end: 20191022
  45. CIMETIDINE [Concomitant]
     Active Substance: CIMETIDINE
     Dates: start: 20191116, end: 20191116
  46. CIMETIDINE [Concomitant]
     Active Substance: CIMETIDINE
     Dates: start: 20190906, end: 20190906
  47. CIMETIDINE [Concomitant]
     Active Substance: CIMETIDINE
     Dates: start: 20191221, end: 20191221
  48. VITAMIN B6 [Concomitant]
     Active Substance: PYRIDOXINE HYDROCHLORIDE
     Dates: start: 20191023, end: 20191023
  49. VITAMIN B6 [Concomitant]
     Active Substance: PYRIDOXINE HYDROCHLORIDE
     Dates: start: 20191221, end: 20191221
  50. ESTAZOLAM [Concomitant]
     Active Substance: ESTAZOLAM
     Dates: start: 20191001, end: 20191001
  51. ESTAZOLAM [Concomitant]
     Active Substance: ESTAZOLAM
     Dates: start: 20191022, end: 20191022
  52. ESTAZOLAM [Concomitant]
     Active Substance: ESTAZOLAM
     Dates: start: 20191116, end: 20191116
  53. ESTAZOLAM [Concomitant]
     Active Substance: ESTAZOLAM
     Dates: start: 20191221, end: 20191222
  54. DIAZEPAM [Concomitant]
     Active Substance: DIAZEPAM
     Indication: Insomnia
     Route: 065
     Dates: start: 20191023, end: 20191023
  55. OPRELVEKIN [Concomitant]
     Active Substance: OPRELVEKIN
     Dates: start: 20191209, end: 20191210
  56. OPRELVEKIN [Concomitant]
     Active Substance: OPRELVEKIN
     Dates: start: 20200105, end: 20200111
  57. DEXAMETHASONE [Concomitant]
     Active Substance: DEXAMETHASONE
     Dates: start: 20191220, end: 20191221
  58. DEXAMETHASONE [Concomitant]
     Active Substance: DEXAMETHASONE
     Dates: start: 20191221, end: 20191221
  59. LEUCOGEN (CHINA) [Concomitant]
     Dates: start: 20200109, end: 20200109
  60. ONDANSETRON HYDROCHLORIDE [Concomitant]
     Active Substance: ONDANSETRON HYDROCHLORIDE
     Indication: Vomiting
     Route: 048
     Dates: start: 20191223, end: 20191224
  61. L-ALANINE [Concomitant]
     Dates: start: 20200101, end: 20200102
  62. L-GLUTAMINE [Concomitant]
     Dates: start: 20200101, end: 20200102
  63. ORNIDAZOLE [Concomitant]
     Active Substance: ORNIDAZOLE
     Dates: start: 20200101, end: 20200102
  64. CLINDAMYCIN PHOSPHATE [Concomitant]
     Active Substance: CLINDAMYCIN PHOSPHATE
     Dates: start: 20200101, end: 20200109
  65. DEXTROSE [Concomitant]
     Active Substance: DEXTROSE\DEXTROSE MONOHYDRATE
     Dates: start: 20200101, end: 20200104
  66. INSULIN NOS [Concomitant]
     Active Substance: INSULIN NOS
     Dates: start: 20200101, end: 20200104
  67. OMEPRAZOLE [Concomitant]
     Active Substance: OMEPRAZOLE
     Dates: start: 20200101, end: 20200106
  68. CEFOTIAM HYDROCHLORIDE [Concomitant]
     Active Substance: CEFOTIAM HYDROCHLORIDE
     Dates: start: 20200101, end: 20200101
  69. LIPOSYN (R) INTRAVENOUS FAT EMULSION [Concomitant]
     Active Substance: LIPOSYN (R) INTRAVENOUS FAT EMULSION
     Dates: start: 20200101, end: 20200105

REACTIONS (1)
  - Intestinal obstruction [Recovered/Resolved]

NARRATIVE: CASE EVENT DATE: 20200101
